FAERS Safety Report 13349701 (Version 1)
Quarter: 2017Q1

REPORT INFORMATION
  Report Type: Spontaneous
  Country: US (occurrence: US)
  Receive Date: 20170318
  Receipt Date: 20170318
  Transmission Date: 20170429
  Serious: Yes (Hospitalization, Disabling)
  Sender: FDA-Public Use
  Company Number: None

PATIENT
  Age: 57 Year
  Sex: Female
  Weight: 65.25 kg

DRUGS (12)
  1. SYNTHROID [Concomitant]
     Active Substance: LEVOTHYROXINE SODIUM
  2. TRILEPTAL [Concomitant]
     Active Substance: OXCARBAZEPINE
  3. PRILOSEC [Concomitant]
     Active Substance: OMEPRAZOLE MAGNESIUM
  4. PLAVIX [Concomitant]
     Active Substance: CLOPIDOGREL BISULFATE
  5. LOSARTAN. [Suspect]
     Active Substance: LOSARTAN
  6. EFFEXOR [Concomitant]
     Active Substance: VENLAFAXINE HYDROCHLORIDE
  7. CLONOPIN [Concomitant]
     Active Substance: CLONAZEPAM
  8. ZIPRAZIDONE [Suspect]
     Active Substance: ZIPRASIDONE
     Indication: BIPOLAR DISORDER
     Route: 048
  9. FISH OIL/OMEGA 3 [Concomitant]
  10. GEODON [Concomitant]
     Active Substance: ZIPRASIDONE HYDROCHLORIDE\ZIPRASIDONE MESYLATE
  11. SODIUM CHLORIDE. [Concomitant]
     Active Substance: SODIUM CHLORIDE
  12. VITAMIN B12 [Concomitant]
     Active Substance: CYANOCOBALAMIN

REACTIONS (8)
  - Dyskinesia [None]
  - Speech disorder [None]
  - Dystonia [None]
  - Excessive eye blinking [None]
  - Dental caries [None]
  - Pain [None]
  - Neck pain [None]
  - Blood sodium decreased [None]

NARRATIVE: CASE EVENT DATE: 20160101
